FAERS Safety Report 8572041-4 (Version None)
Quarter: 2012Q3

REPORT INFORMATION
  Report Type: 
  Country: None (occurrence: None)
  Receive Date: 20120806
  Receipt Date: 20120725
  Transmission Date: 20120928
  Serious: Yes (Hospitalization, Other)
  Sender: FDA-Public Use
  Company Number: IT-BRISTOL-MYERS SQUIBB COMPANY-16806382

PATIENT
  Age: 78 Year
  Sex: Male

DRUGS (7)
  1. COUMADIN [Suspect]
     Indication: ATRIAL FIBRILLATION
     Route: 048
     Dates: start: 19930101, end: 20120710
  2. OMEPRAZOLE [Concomitant]
  3. TENORMIN [Concomitant]
     Indication: HYPERTENSION
     Dosage: TABS
     Route: 048
  4. IRBESARTAN AND HYDROCHLOROTHIAZIDE [Concomitant]
     Route: 048
  5. CORDARONE [Suspect]
     Route: 048
     Dates: end: 20120713
  6. METFORMIN HCL [Concomitant]
     Indication: TYPE 2 DIABETES MELLITUS
     Dosage: TABS
     Route: 048
  7. LANOXIN [Concomitant]
     Indication: MYOCARDIAL ISCHAEMIA
     Dosage: TABS
     Route: 048

REACTIONS (4)
  - HYPOTHYROIDISM [None]
  - SUBDURAL HAEMATOMA [None]
  - GINGIVAL BLEEDING [None]
  - JAW FRACTURE [None]
